FAERS Safety Report 12776272 (Version 2)
Quarter: 2016Q4

REPORT INFORMATION
  Report Type: Spontaneous
  Country: US (occurrence: US)
  Receive Date: 20160923
  Receipt Date: 20161021
  Transmission Date: 20170207
  Serious: No
  Sender: FDA-Public Use
  Company Number: ALCN2016US006522

PATIENT
  Age: 75 Year
  Sex: Female

DRUGS (1)
  1. NEOMYCIN AND POLYMYXIN B SULFATES AND DEXAMETHASONE [Suspect]
     Active Substance: DEXAMETHASONE\NEOMYCIN SULFATE\POLYMYXIN B SULFATE
     Indication: HORDEOLUM
     Dosage: (HALF INCH) TID
     Route: 047
     Dates: start: 20160830, end: 20160919

REACTIONS (4)
  - Ocular discomfort [Unknown]
  - Drug ineffective [Unknown]
  - Eyelid oedema [Recovering/Resolving]
  - Eye pain [Unknown]

NARRATIVE: CASE EVENT DATE: 20160916
